FAERS Safety Report 19244730 (Version 2)
Quarter: 2021Q2

REPORT INFORMATION
  Report Type: Spontaneous
  Country: US (occurrence: US)
  Receive Date: 20210512
  Receipt Date: 20210601
  Transmission Date: 20210717
  Serious: No
  Sender: FDA-Public Use
  Company Number: US-B.I. PHARMACEUTICALS,INC./RIDGEFIELD-2021-BI-102317

PATIENT
  Age: 75 Year
  Sex: Female

DRUGS (2)
  1. SPIRIVA [Suspect]
     Active Substance: TIOTROPIUM BROMIDE MONOHYDRATE
     Indication: ASTHMA
     Dosage: 2 INHALATIONS, 1 CAPSULE DAILY
     Dates: end: 202104
  2. SPIRIVA [Suspect]
     Active Substance: TIOTROPIUM BROMIDE MONOHYDRATE

REACTIONS (7)
  - Dyspnoea [Recovering/Resolving]
  - Off label use [Recovered/Resolved]
  - Productive cough [Recovering/Resolving]
  - Cough [Recovering/Resolving]
  - Dry mouth [Recovering/Resolving]
  - Product quality issue [Unknown]
  - Infection [Unknown]

NARRATIVE: CASE EVENT DATE: 2021
